FAERS Safety Report 15691395 (Version 7)
Quarter: 2019Q1

REPORT INFORMATION
  Report Type: Spontaneous
  Country: US (occurrence: US)
  Receive Date: 20181205
  Receipt Date: 20190204
  Transmission Date: 20190417
  Serious: No
  Sender: FDA-Public Use
  Company Number: US-SA-2018SA331576

PATIENT
  Age: 71 Year
  Sex: Female
  Weight: 72.5 kg

DRUGS (16)
  1. EPINEPHRINE. [Concomitant]
     Active Substance: EPINEPHRINE
     Dosage: 0.3 MG, PRN
     Route: 050
     Dates: start: 20181116
  2. CANDESARTAN CILEXETIL. [Concomitant]
     Active Substance: CANDESARTAN CILEXETIL
     Dosage: 32 MG, QD
     Route: 050
     Dates: start: 20180606
  3. FABRAZYME [Suspect]
     Active Substance: AGALSIDASE BETA
     Dosage: 65 UNK
     Route: 041
     Dates: start: 20180627
  4. FLONASE [MOMETASONE FUROATE] [Concomitant]
     Active Substance: MOMETASONE FUROATE
     Dosage: 50 MCG 1 SPRAY IN EACH NOSTRIL DAILY
     Dates: start: 20181012
  5. CARVEDILOL. [Concomitant]
     Active Substance: CARVEDILOL
     Dosage: 25 MG, QD
     Route: 065
     Dates: start: 20180606
  6. ALLERGY RELIEF [FEXOFENADINE HYDROCHLORIDE] [Concomitant]
     Dosage: 10 MG, QD
     Route: 048
     Dates: start: 20181012
  7. ACETAMINOPHEN. [Concomitant]
     Active Substance: ACETAMINOPHEN
     Dosage: 650 MG, PRN
     Route: 065
     Dates: start: 20181116
  8. HYDROCORTISONE. [Concomitant]
     Active Substance: HYDROCORTISONE
     Dosage: 100 MG, PRN
     Route: 065
     Dates: start: 20181116
  9. HYDROCORTISONE. [Concomitant]
     Active Substance: HYDROCORTISONE
     Dosage: 100 UNK
     Dates: start: 20180627
  10. STERILE WATER [Concomitant]
     Active Substance: WATER
     Dosage: 0.9 % FLUSHING
     Route: 065
     Dates: start: 20181116
  11. ASPIRIN [ACETYLSALICYLIC ACID] [Concomitant]
     Active Substance: ASPIRIN
     Dosage: 81 MG, QD
     Route: 050
     Dates: start: 20180606
  12. NORMAL SALINE [Concomitant]
     Active Substance: SODIUM CHLORIDE
     Dosage: 0.9 UNK
     Route: 042
     Dates: start: 20180627
  13. CORICIDIN HBP [Concomitant]
     Active Substance: ACETAMINOPHEN\CHLORPHENIRAMINE MALEATE
     Dosage: 500 MG, PRN
     Route: 065
     Dates: start: 20181128
  14. NORMAL SALINE [Concomitant]
     Active Substance: SODIUM CHLORIDE
     Dosage: 0.9 % DILUENT
     Route: 065
     Dates: start: 20181116
  15. FABRAZYME [Suspect]
     Active Substance: AGALSIDASE BETA
     Indication: LIPIDOSIS
     Dosage: 0.89 MG, QOW
     Route: 041
     Dates: start: 20181024
  16. XYZAL [Concomitant]
     Active Substance: LEVOCETIRIZINE DIHYDROCHLORIDE
     Dosage: 5 MG, PRN
     Route: 065
     Dates: start: 20181128

REACTIONS (5)
  - Nasopharyngitis [Unknown]
  - Sinusitis [Not Recovered/Not Resolved]
  - Oropharyngeal pain [Unknown]
  - Upper-airway cough syndrome [Not Recovered/Not Resolved]
  - Dizziness [Recovered/Resolved]
